FAERS Safety Report 25792659 (Version 4)
Quarter: 2025Q4

REPORT INFORMATION
  Report Type: Report from Study
  Country: US (occurrence: US)
  Receive Date: 20250911
  Receipt Date: 20251031
  Transmission Date: 20260118
  Serious: No
  Sender: MALLINCKRODT
  Company Number: US-MALLINCKRODT-MNK202505667

PATIENT
  Age: 35 Year
  Sex: Male
  Weight: 285 kg

DRUGS (1)
  1. CORTICOTROPIN [Suspect]
     Active Substance: CORTICOTROPIN
     Indication: Punctate keratitis
     Dosage: 80 UNITS
     Route: 058
     Dates: start: 20250907

REACTIONS (5)
  - Rash [Unknown]
  - Acne [Unknown]
  - Injection site bruising [Unknown]
  - Injection site discharge [Unknown]
  - Underdose [Unknown]

NARRATIVE: CASE EVENT DATE: 20250101
